FAERS Safety Report 10619440 (Version 1)
Quarter: 2014Q4

REPORT INFORMATION
  Report Type: Spontaneous
  Country: US (occurrence: US)
  Receive Date: 20141202
  Receipt Date: 20141202
  Transmission Date: 20150529
  Serious: Yes (Other)
  Sender: FDA-Public Use
  Company Number: US-SA-2014SA165088

PATIENT
  Age: 78 Year
  Sex: Male

DRUGS (15)
  1. SPIRIVA [Concomitant]
     Active Substance: TIOTROPIUM BROMIDE MONOHYDRATE
  2. DOXAZOSIN [Concomitant]
     Active Substance: DOXAZOSIN\DOXAZOSIN MESYLATE
  3. CLOBETASOL [Concomitant]
     Active Substance: CLOBETASOL
  4. PROTONIX [Concomitant]
     Active Substance: PANTOPRAZOLE SODIUM
  5. PRAVASTATIN [Concomitant]
     Active Substance: PRAVASTATIN\PRAVASTATIN SODIUM
  6. PLAVIX [Suspect]
     Active Substance: CLOPIDOGREL BISULFATE
     Indication: MYOCARDIAL INFARCTION
     Route: 048
     Dates: start: 201005
  7. RENVELA [Concomitant]
     Active Substance: SEVELAMER CARBONATE
  8. TUMS [Concomitant]
     Active Substance: CALCIUM CARBONATE
  9. METOPROLOL [Concomitant]
     Active Substance: METOPROLOL
  10. SYMBICORT [Concomitant]
     Active Substance: BUDESONIDE\FORMOTEROL FUMARATE DIHYDRATE
  11. TAMSULOSIN [Concomitant]
     Active Substance: TAMSULOSIN
  12. AVODART [Concomitant]
     Active Substance: DUTASTERIDE
  13. FUROSEMIDE. [Concomitant]
     Active Substance: FUROSEMIDE
  14. JANUVIA [Concomitant]
     Active Substance: SITAGLIPTIN PHOSPHATE
  15. ASA [Concomitant]
     Active Substance: ASPIRIN

REACTIONS (1)
  - Nephropathy [Unknown]
